FAERS Safety Report 6087167-7 (Version None)
Quarter: 2009Q1

REPORT INFORMATION
  Report Type: 
  Country: None (occurrence: None)
  Receive Date: 20090223
  Receipt Date: 20090216
  Transmission Date: 20090719
  Serious: Yes (Death)
  Sender: FDA-Public Use
  Company Number: MY-MERCK-0902MYS00011

PATIENT
  Age: 20 Year
  Sex: Female

DRUGS (1)
  1. PRIMAXIN [Suspect]
     Indication: PNEUMONIA
     Route: 041
     Dates: start: 20071225

REACTIONS (1)
  - GRAND MAL CONVULSION [None]
